FAERS Safety Report 6172802-5 (Version None)
Quarter: 2009Q2

REPORT INFORMATION
  Report Type: 
  Country: None (occurrence: None)
  Receive Date: 20090430
  Receipt Date: 20090420
  Transmission Date: 20091009
  Serious: Yes (Other)
  Sender: FDA-Public Use
  Company Number: DE-BRISTOL-MYERS SQUIBB COMPANY-14598957

PATIENT
  Age: 64 Year
  Sex: Male

DRUGS (1)
  1. MITOMYCIN [Suspect]
     Indication: BLADDER CANCER
     Dosage: TOTAL OF 10-12 ADMINISTRATIONS.
     Dates: start: 20071201, end: 20080401

REACTIONS (1)
  - PULMONARY FIBROSIS [None]
